FAERS Safety Report 11458273 (Version 1)
Quarter: 2015Q3

REPORT INFORMATION
  Report Type: Spontaneous
  Country: JP (occurrence: JP)
  Receive Date: 20150904
  Receipt Date: 20150904
  Transmission Date: 20151125
  Serious: Yes (Other)
  Sender: FDA-Public Use
  Company Number: JP-PFIZER INC-2015292414

PATIENT
  Age: 36 Year

DRUGS (1)
  1. DALACIN [Suspect]
     Active Substance: CLINDAMYCIN\CLINDAMYCIN PHOSPHATE
     Indication: INFECTION
     Dosage: UNK
     Route: 042

REACTIONS (3)
  - Disease progression [Unknown]
  - Sepsis [Unknown]
  - Liver function test abnormal [Unknown]
